FAERS Safety Report 9239907 (Version 1)
Quarter: 2013Q2

REPORT INFORMATION
  Report Type: Other
  Country: AU (occurrence: AU)
  Receive Date: 20130418
  Receipt Date: 20130418
  Transmission Date: 20140414
  Serious: Yes (Other)
  Sender: FDA-Public Use
  Company Number: AU-BRISTOL-MYERS SQUIBB COMPANY-18765495

PATIENT
  Age: 67 Year
  Sex: Male

DRUGS (9)
  1. CARMUSTINE [Suspect]
     Dosage: 450MG/M
  2. ETOPOSIDE [Suspect]
  3. IRBESARTAN + HCTZ [Concomitant]
     Indication: HYPERTENSION
     Dosage: 300/12.5MG DAILY
  4. FELODIPINE [Concomitant]
     Indication: HYPERTENSION
  5. ATORVASTATIN [Concomitant]
     Indication: HYPERCHOLESTEROLAEMIA
  6. SERTRALINE [Concomitant]
     Indication: ANXIETY
  7. GRANISETRON [Concomitant]
     Indication: FLUID REPLACEMENT
  8. DEXAMETHASONE [Concomitant]
     Indication: FLUID REPLACEMENT
  9. METOCLOPRAMIDE [Concomitant]

REACTIONS (1)
  - Renal failure acute [Recovered/Resolved]
